FAERS Safety Report 20291955 (Version 2)
Quarter: 2022Q3

REPORT INFORMATION
  Report Type: Spontaneous
  Country: US (occurrence: US)
  Receive Date: 20220104
  Receipt Date: 20220822
  Transmission Date: 20221027
  Serious: No
  Sender: FDA-Public Use
  Company Number: US-MYLANLABS-2021M1074567

PATIENT
  Sex: Female
  Weight: 86 kg

DRUGS (2)
  1. ESTRADIOL TRANSDERMAL SYSTEM [Suspect]
     Active Substance: ESTRADIOL
     Indication: Hormone replacement therapy
     Dosage: 0.1 MILLIGRAM, QD (TWICE-WEEKLY)
     Route: 062
  2. WELLBUTRIN [Concomitant]
     Active Substance: BUPROPION HYDROCHLORIDE
     Indication: Thyroid disorder
     Dosage: UNK

REACTIONS (7)
  - Wrong technique in product usage process [Unknown]
  - Product adhesion issue [Not Recovered/Not Resolved]
  - Feeling hot [Unknown]
  - Night sweats [Unknown]
  - Vulvovaginal dryness [Unknown]
  - Hot flush [Unknown]
  - Feeling abnormal [Unknown]
